FAERS Safety Report 9882303 (Version 3)
Quarter: 2014Q1

REPORT INFORMATION
  Report Type: Spontaneous
  Country: JP (occurrence: JP)
  Receive Date: 20140207
  Receipt Date: 20140228
  Transmission Date: 20141002
  Serious: Yes (Other)
  Sender: FDA-Public Use
  Company Number: ALCN2014JP000911

PATIENT
  Age: 71 Year
  Sex: Male

DRUGS (2)
  1. TRAVATAN Z (SOFZIA) [Suspect]
     Indication: OPEN ANGLE GLAUCOMA
     Dosage: 1 GTT, QD
     Route: 047
     Dates: start: 20131224, end: 20131230
  2. ALPHAGAN [Concomitant]
     Indication: GLAUCOMA
     Dosage: 1 GTT, BID
     Route: 047
     Dates: start: 20131121

REACTIONS (1)
  - Arrhythmia [Recovering/Resolving]
